FAERS Safety Report 4693955-1 (Version None)
Quarter: 2005Q2

REPORT INFORMATION
  Report Type: 
  Country: None (occurrence: None)
  Receive Date: 20050617
  Receipt Date: 20050117
  Transmission Date: 20051028
  Serious: Yes (Death, Hospitalization)
  Sender: FDA-Public Use
  Company Number: US-MERCK-0501USA02654

PATIENT
  Age: 61 Year
  Sex: Female

DRUGS (9)
  1. EVISTA [Concomitant]
     Route: 065
  2. AMITRIPTYLINE HYDROCHLORIDE [Concomitant]
     Route: 065
  3. ULTRACET [Concomitant]
     Route: 065
     Dates: end: 20040101
  4. VIOXX [Suspect]
     Indication: OSTEOARTHRITIS
     Route: 048
     Dates: start: 20000418, end: 20000701
  5. VIOXX [Suspect]
     Route: 048
     Dates: start: 20001201, end: 20040102
  6. VIOXX [Suspect]
     Indication: ARTHRALGIA
     Route: 048
     Dates: start: 20000418, end: 20000701
  7. VIOXX [Suspect]
     Route: 048
     Dates: start: 20001201, end: 20040102
  8. TYLENOL W/ CODEINE [Concomitant]
     Route: 065
     Dates: end: 20040101
  9. TENORMIN [Concomitant]
     Indication: HYPERTENSION
     Route: 065
     Dates: end: 20040101

REACTIONS (5)
  - CEREBROVASCULAR ACCIDENT [None]
  - COMPRESSION FRACTURE [None]
  - DIARRHOEA [None]
  - HYPERTENSION [None]
  - JOINT SWELLING [None]
